FAERS Safety Report 17276959 (Version 1)
Quarter: 2020Q1

REPORT INFORMATION
  Report Type: Spontaneous
  Country: US (occurrence: US)
  Receive Date: 20200115
  Receipt Date: 20200115
  Transmission Date: 20200409
  Serious: Yes (Disabling, Other)
  Sender: FDA-Public Use
  Company Number: None

PATIENT
  Age: 58 Year
  Sex: Female
  Weight: 67.5 kg

DRUGS (6)
  1. MEDICATION FOR THYROID REPLACEMENT [Concomitant]
  2. MEDICATION FOR HORMONE REPLACEMENT [Concomitant]
  3. NP THYROID [Suspect]
     Active Substance: LEVOTHYROXINE\LIOTHYRONINE
     Indication: HYPOTHYROIDISM
     Dosage: ?          QUANTITY:90 TABLET(S);?
     Route: 048
     Dates: start: 20190904, end: 20200114
  4. VITAMIN D [Concomitant]
     Active Substance: VITAMIN D NOS
  5. DAILY VITAMIN [Concomitant]
     Active Substance: VITAMINS
  6. VITAMIN B [Concomitant]
     Active Substance: VITAMIN B

REACTIONS (8)
  - Feeling abnormal [None]
  - Asthenia [None]
  - Product substitution issue [None]
  - Thyroid hormones decreased [None]
  - Insurance issue [None]
  - Product odour abnormal [None]
  - Drug ineffective [None]
  - Product quality issue [None]

NARRATIVE: CASE EVENT DATE: 20190901
